FAERS Safety Report 8063378-6 (Version None)
Quarter: 2012Q1

REPORT INFORMATION
  Report Type: 
  Country: None (occurrence: None)
  Receive Date: 20120123
  Receipt Date: 20120117
  Transmission Date: 20120608
  Serious: Yes (Other)
  Sender: FDA-Public Use
  Company Number: US-TEVA-2011006380

PATIENT
  Sex: Female
  Weight: 108.51 kg

DRUGS (4)
  1. NUVIGIL [Suspect]
     Indication: HYPERSOMNIA
     Dosage: 250 MILLIGRAM;
     Route: 048
     Dates: start: 20111130, end: 20111201
  2. CITALOPRAM HYDROBROMIDE [Concomitant]
  3. ALBUTEROL SULFATE AUTOHALER [Concomitant]
  4. ZOLPIDEM TARTRATE [Concomitant]

REACTIONS (3)
  - APHASIA [None]
  - CONFUSIONAL STATE [None]
  - AMNESIA [None]
